FAERS Safety Report 10484241 (Version 1)
Quarter: 2014Q3

REPORT INFORMATION
  Report Type: Spontaneous
  Country: US (occurrence: None)
  Receive Date: 20140926
  Receipt Date: 20140926
  Transmission Date: 20150326
  Serious: Yes (Other)
  Sender: FDA-Public Use
  Company Number: ADR-2014-01743

PATIENT
  Age: 21 Year
  Sex: Female

DRUGS (5)
  1. BACLOFEN. [Suspect]
     Active Substance: BACLOFEN
     Indication: TOURETTE^S DISORDER
  2. FLUPHENAZINE [Suspect]
     Active Substance: FLUPHENAZINE
  3. TETRABENAZINE [Suspect]
     Active Substance: TETRABENAZINE
     Indication: TOURETTE^S DISORDER
  4. TOPIRAMATE. [Suspect]
     Active Substance: TOPIRAMATE
  5. ZIPRASIDONE [Suspect]
     Active Substance: ZIPRASIDONE

REACTIONS (7)
  - Parkinsonism [None]
  - Herpes zoster [None]
  - Pain [None]
  - No therapeutic response [None]
  - Gait disturbance [None]
  - Implant site rash [None]
  - Sedation [None]

NARRATIVE: CASE EVENT DATE: 20140326
